FAERS Safety Report 5669283-4 (Version None)
Quarter: 2008Q1

REPORT INFORMATION
  Report Type: 
  Country: None (occurrence: None)
  Receive Date: 20080313
  Receipt Date: 20080313
  Transmission Date: 20080703
  Serious: Yes (Hospitalization)
  Sender: FDA-Public Use
  Company Number: None

PATIENT
  Sex: Female
  Weight: 86.36 kg

DRUGS (7)
  1. CISPLATIN [Suspect]
     Dosage: 91 MG
  2. DOXORUBICIN HYDROCHLORIDE [Suspect]
     Dosage: 55 MG
  3. G-CSF (FILGRASTIM, AMGEN) [Suspect]
     Dosage: 60 MG
  4. TAXOL [Suspect]
     Dosage: 228 MG
  5. AMBIEN [Concomitant]
  6. COUMADIN [Concomitant]
  7. ZOFRAN [Concomitant]

REACTIONS (5)
  - DIARRHOEA [None]
  - NAUSEA [None]
  - ORAL INTAKE REDUCED [None]
  - SYNCOPE VASOVAGAL [None]
  - VOMITING [None]
